FAERS Safety Report 17821379 (Version 3)
Quarter: 2021Q2

REPORT INFORMATION
  Report Type: Report from Study
  Country: CZ (occurrence: CZ)
  Receive Date: 20200525
  Receipt Date: 20210506
  Transmission Date: 20210716
  Serious: Yes (Life-Threatening, Hospitalization)
  Sender: FDA-Public Use
  Company Number: CZ-SA-2018SA093037

PATIENT
  Age: 71 Year
  Sex: Female
  Weight: 64.5 kg

DRUGS (20)
  1. LOZAP [LOSARTAN POTASSIUM] [Concomitant]
     Dosage: UNK UNK,UNK
     Route: 048
     Dates: start: 2010
  2. KALNORMIN [Concomitant]
     Active Substance: POTASSIUM CHLORIDE
     Indication: PROPHYLAXIS
     Dosage: UNK
     Route: 048
     Dates: start: 20180328
  3. BORTEZOMIB. [Suspect]
     Active Substance: BORTEZOMIB
     Indication: PLASMA CELL MYELOMA
     Dosage: 1.3 MG/M2,OTHER (DAYS 1, 4, 8, 11 AND DAYS 22, 25, 29, 32)
     Route: 058
     Dates: start: 20180326, end: 20180326
  4. ONBREZ [Concomitant]
     Active Substance: INDACATEROL
     Dosage: UNK UNK,UNK
     Route: 055
     Dates: start: 2012
  5. FRAXIPARIN [Concomitant]
     Active Substance: NADROPARIN CALCIUM
     Indication: PROPHYLAXIS
     Dosage: UNK
     Route: 058
     Dates: start: 20180326
  6. ISATUXIMAB [Suspect]
     Active Substance: ISATUXIMAB
     Indication: PLASMA CELL MYELOMA
     Dosage: 10 MG/KG,QW
     Route: 042
     Dates: start: 20180326, end: 20180326
  7. SIMGAL [Concomitant]
     Active Substance: SIMVASTATIN
     Dosage: UNK UNK,UNK
     Route: 048
     Dates: start: 2010
  8. VALACICLOVIR [Concomitant]
     Active Substance: VALACYCLOVIR HYDROCHLORIDE
     Indication: PROPHYLAXIS
     Dosage: UNK
     Route: 048
     Dates: start: 20180326
  9. SUFENTANIL [Concomitant]
     Active Substance: SUFENTANIL
     Dosage: UNK
     Route: 042
     Dates: start: 20180326
  10. ISOPTIN [Concomitant]
     Active Substance: VERAPAMIL HYDROCHLORIDE
     Dosage: UNK UNK,UNK
     Route: 048
     Dates: start: 2010
  11. SPIRIVA [Concomitant]
     Active Substance: TIOTROPIUM BROMIDE MONOHYDRATE
     Dosage: UNK UNK,UNK
     Route: 055
     Dates: start: 2012
  12. LEVOFLOXACIN. [Concomitant]
     Active Substance: LEVOFLOXACIN
     Dosage: UNK
     Route: 048
     Dates: start: 20180328, end: 20180406
  13. TORECAN [Concomitant]
     Active Substance: THIETHYLPERAZINE MALATE
     Dosage: UNK
     Route: 042
     Dates: start: 20180401, end: 20180401
  14. FENTALIS [Concomitant]
     Active Substance: FENTANYL
     Dosage: UNK
     Route: 062
     Dates: start: 20180326
  15. DEXAMETHASONE. [Suspect]
     Active Substance: DEXAMETHASONE
     Indication: PLASMA CELL MYELOMA
     Dosage: 20 MG, D1, D2, D4, D5, D8, D9, D11, D12, D15, D22, D23, D25, D26, D29, D30, D32, D33
     Route: 042
     Dates: start: 20180326, end: 20180326
  16. ZOLEDRONIC ACID. [Concomitant]
     Active Substance: ZOLEDRONIC ACID
     Indication: PROPHYLAXIS
     Dosage: UNK UNK,UNK
     Route: 042
     Dates: start: 20180222
  17. LENALIDOMIDE [Suspect]
     Active Substance: LENALIDOMIDE
     Indication: PLASMA CELL MYELOMA
     Dosage: 25 MG,QD
     Route: 048
     Dates: start: 20180326, end: 20180401
  18. VIGANTOL [COLECALCIFEROL] [Concomitant]
     Active Substance: CHOLECALCIFEROL
     Dosage: 0.5 MG/ML
     Route: 047
     Dates: start: 20180320
  19. CONTROLOC [Concomitant]
     Active Substance: PANTOPRAZOLE SODIUM
     Dosage: 40 MG, QD
     Route: 065
  20. COTRIMOXAZOL [Concomitant]
     Active Substance: SULFAMETHOXAZOLE\TRIMETHOPRIM
     Indication: PROPHYLAXIS
     Dosage: UNK
     Route: 048
     Dates: start: 20180326

REACTIONS (3)
  - Anaphylactic reaction [Recovered/Resolved]
  - Constipation [Recovered/Resolved]
  - Constipation [Recovered/Resolved]

NARRATIVE: CASE EVENT DATE: 20180326
